FAERS Safety Report 7433901-0 (Version None)
Quarter: 2011Q2

REPORT INFORMATION
  Report Type: 
  Country: None (occurrence: None)
  Receive Date: 20110425
  Receipt Date: 20110414
  Transmission Date: 20111010
  Serious: Yes (Death)
  Sender: FDA-Public Use
  Company Number: US-ELI_LILLY_AND_COMPANY-US201012006163

PATIENT
  Sex: Male

DRUGS (4)
  1. FORTEO [Suspect]
     Indication: OSTEOPOROSIS
     Dosage: 20 UG, DAILY (1/D)
     Dates: start: 20101221, end: 20101222
  2. PREDNISONE [Concomitant]
  3. XOPENEX [Concomitant]
  4. SPIRIVA [Concomitant]

REACTIONS (4)
  - RESPIRATORY FAILURE [None]
  - ABDOMINAL DISCOMFORT [None]
  - NAUSEA [None]
  - DIZZINESS [None]
